FAERS Safety Report 13660869 (Version 1)
Quarter: 2017Q2

REPORT INFORMATION
  Report Type: Spontaneous
  Country: US (occurrence: US)
  Receive Date: 20170616
  Receipt Date: 20170616
  Transmission Date: 20170830
  Serious: Yes (Other)
  Sender: FDA-Public Use
  Company Number: US-JNJFOC-20170602073

PATIENT

DRUGS (10)
  1. IBUPROFEN. [Suspect]
     Active Substance: IBUPROFEN
     Indication: DRUG PROVOCATION TEST
     Dosage: THERAPEUTIC DOSE: 400-800 MG
     Route: 048
  2. DICLOFENAC [Suspect]
     Active Substance: DICLOFENAC
     Indication: DRUG PROVOCATION TEST
     Route: 048
  3. NAPROXEN. [Suspect]
     Active Substance: NAPROXEN
     Indication: DRUG PROVOCATION TEST
     Dosage: 375-500 MG
     Route: 048
  4. ACETAMINOPHEN. [Suspect]
     Active Substance: ACETAMINOPHEN
     Indication: DRUG PROVOCATION TEST
     Route: 048
  5. KETOROLAC [Suspect]
     Active Substance: KETOROLAC\KETOROLAC TROMETHAMINE
     Indication: DRUG PROVOCATION TEST
     Route: 048
  6. ACETAMINOPHEN. [Suspect]
     Active Substance: ACETAMINOPHEN
     Route: 048
  7. ASPIRIN. [Suspect]
     Active Substance: ASPIRIN
     Indication: DRUG PROVOCATION TEST
     Route: 048
  8. CELECOXIB. [Suspect]
     Active Substance: CELECOXIB
     Indication: DRUG PROVOCATION TEST
     Route: 048
  9. PIROXICAM. [Suspect]
     Active Substance: PIROXICAM
     Indication: DRUG PROVOCATION TEST
     Route: 048
  10. IBUPROFEN. [Suspect]
     Active Substance: IBUPROFEN
     Route: 048

REACTIONS (7)
  - Product use in unapproved indication [Unknown]
  - Angioedema [Unknown]
  - Urticaria [Unknown]
  - Gastrointestinal disorder [Unknown]
  - Off label use [Unknown]
  - Wrong technique in product usage process [Unknown]
  - Palmar erythema [Unknown]
